FAERS Safety Report 4740685-3 (Version None)
Quarter: 2005Q3

REPORT INFORMATION
  Report Type: 
  Country: None (occurrence: None)
  Receive Date: 20050810
  Receipt Date: 20050221
  Transmission Date: 20060218
  Serious: Yes (Other)
  Sender: FDA-Public Use
  Company Number: US-GLAXOSMITHKLINE-A0546519A

PATIENT
  Sex: Female
  Weight: 68.2 kg

DRUGS (4)
  1. LAMICTAL [Suspect]
     Indication: BIPOLAR DISORDER
     Route: 048
     Dates: start: 19990101
  2. WELLBUTRIN [Suspect]
  3. LITHIUM [Suspect]
     Dates: start: 20050501, end: 20050601
  4. ZOLOFT [Concomitant]

REACTIONS (5)
  - ABNORMAL DREAMS [None]
  - ADVERSE EVENT [None]
  - HYPNAGOGIC HALLUCINATION [None]
  - NIGHTMARE [None]
  - WEIGHT INCREASED [None]
